FAERS Safety Report 12585851 (Version 1)
Quarter: 2016Q3

REPORT INFORMATION
  Report Type: Spontaneous
  Country: GB (occurrence: GB)
  Receive Date: 20160725
  Receipt Date: 20160725
  Transmission Date: 20161109
  Serious: Yes (Hospitalization, Other)
  Sender: FDA-Public Use
  Company Number: GB-CIPLA LTD.-2016GB09869

PATIENT

DRUGS (11)
  1. SALMETEROL [Concomitant]
     Active Substance: SALMETEROL
     Dosage: UNK
  2. RAMIPRIL. [Concomitant]
     Active Substance: RAMIPRIL
     Dosage: 2.5 MG, QD
     Route: 065
  3. VITAMIN B12 [Concomitant]
     Active Substance: CYANOCOBALAMIN
     Dosage: UNK
     Route: 065
  4. VIAZEM XL [Concomitant]
     Active Substance: DILTIAZEM HYDROCHLORIDE
     Dosage: 6 MG, QD
     Route: 065
  5. DIGOXIN. [Concomitant]
     Active Substance: DIGOXIN
     Dosage: 125 (UNKNOWN UNITS), ONCE DAILY
     Route: 065
  6. NAPROXEN. [Suspect]
     Active Substance: NAPROXEN
     Dosage: 500 MG, BID, 2 TABLETS
     Route: 048
     Dates: start: 20160330, end: 20160401
  7. SIMVASTATIN. [Concomitant]
     Active Substance: SIMVASTATIN
     Dosage: 10 MG, QD
     Route: 065
  8. INDOMETACIN [Suspect]
     Active Substance: INDOMETHACIN
     Dosage: 50 MG, TID, X 6 CAPSULES
     Route: 048
     Dates: start: 20160324, end: 20160326
  9. WARFARIN [Suspect]
     Active Substance: WARFARIN
     Indication: ATRIAL FIBRILLATION
     Dosage: AS PER INTERNATIONAL NORMALISED RATIO
     Route: 048
  10. FLUTICASONE [Concomitant]
     Active Substance: FLUTICASONE\FLUTICASONE PROPIONATE
     Dosage: UNK
  11. FUROSEMIDE. [Concomitant]
     Active Substance: FUROSEMIDE
     Dosage: 40 MG, QD
     Route: 065

REACTIONS (3)
  - Contraindicated product administered [Unknown]
  - Haemarthrosis [Unknown]
  - Pain in extremity [Unknown]

NARRATIVE: CASE EVENT DATE: 2016
